FAERS Safety Report 9918166 (Version 1)
Quarter: 2014Q1

REPORT INFORMATION
  Report Type: Spontaneous
  Country: US (occurrence: US)
  Receive Date: 20140223
  Receipt Date: 20140223
  Transmission Date: 20141002
  Serious: No
  Sender: FDA-Public Use
  Company Number: US-ROXANE LABORATORIES, INC.-2014-RO-00265RO

PATIENT
  Sex: Female

DRUGS (2)
  1. AZATHIOPRINE [Suspect]
     Indication: IMMUNE SYSTEM DISORDER
     Dosage: 150 MG
     Route: 048
     Dates: start: 201001, end: 201302
  2. GABAPENTIN [Concomitant]

REACTIONS (1)
  - Rash [Recovered/Resolved]
